FAERS Safety Report 8415606-2 (Version None)
Quarter: 2012Q2

REPORT INFORMATION
  Report Type: 
  Country: None (occurrence: None)
  Receive Date: 20120606
  Receipt Date: 20120529
  Transmission Date: 20120825
  Serious: Yes (Hospitalization)
  Sender: FDA-Public Use
  Company Number: IT-ASTRAZENECA-2011SE44713

PATIENT
  Age: 26310 Day
  Sex: Male

DRUGS (5)
  1. OMEPRAZOLE [Suspect]
     Indication: PROPHYLAXIS
     Route: 048
     Dates: start: 20110101, end: 20110726
  2. KEPPRA [Suspect]
     Indication: EPILEPSY
     Dosage: 1000 MG DAILY, 250 MG 60 FILM COATED TABLETS ORAL USE
     Route: 048
     Dates: start: 20110101, end: 20110624
  3. RAMIPRIL [Concomitant]
     Route: 048
  4. PLAVIX [Concomitant]
  5. CLONAZEPAM [Suspect]
     Indication: EPILEPSY
     Dosage: 2.5 MG / ML ORAL DROPS, SOLUTION  FLACON 10ML AS REQUIRED
     Route: 048
     Dates: start: 20110101

REACTIONS (5)
  - SKIN EXFOLIATION [None]
  - CONJUNCTIVITIS [None]
  - MUCOSAL INFLAMMATION [None]
  - PRURITUS [None]
  - HYPERTRANSAMINASAEMIA [None]
